FAERS Safety Report 8901259 (Version 2)
Quarter: 2013Q1

REPORT INFORMATION
  Report Type: Spontaneous
  Country: US (occurrence: US)
  Receive Date: 20121109
  Receipt Date: 20130102
  Transmission Date: 20140127
  Serious: No
  Sender: FDA-Public Use
  Company Number: US-PFIZER INC-2012279806

PATIENT
  Sex: Female

DRUGS (1)
  1. LYRICA [Suspect]
     Indication: FIBROMYALGIA
     Dosage: UNK
     Route: 048
     Dates: start: 2012

REACTIONS (5)
  - Dyspnoea [Unknown]
  - Wheezing [Unknown]
  - Sleep disorder [Unknown]
  - Somnambulism [Unknown]
  - Nightmare [Unknown]
